FAERS Safety Report 6289797-6 (Version None)
Quarter: 2009Q3

REPORT INFORMATION
  Report Type: 
  Country: None (occurrence: None)
  Receive Date: 20090730
  Receipt Date: 20080731
  Transmission Date: 20100115
  Serious: No
  Sender: FDA-Public Use
  Company Number: US-BRISTOL-MYERS SQUIBB COMPANY-14284350

PATIENT
  Age: 70 Year
  Sex: Female

DRUGS (15)
  1. COUMADIN [Suspect]
     Indication: ANTICOAGULANT THERAPY
     Dosage: COUMADIN^ENDO^ 3MG
     Route: 065
  2. PLAVIX [Interacting]
     Indication: MYOCARDIAL INFARCTION
     Route: 048
  3. INSULIN HUMAN [Concomitant]
     Indication: DIABETES MELLITUS
     Dosage: DOSE : SLIDING SCALE
     Route: 065
     Dates: start: 19850101
  4. LANTUS [Concomitant]
     Indication: DIABETES MELLITUS
     Dosage: 1 DOSAGE FORM = 15(UNIT NOT SPECIFIED) HS FORM = SOLUTION
     Route: 065
     Dates: start: 19850101
  5. TRUSOPT [Concomitant]
     Indication: GLAUCOMA
     Dosage: FORM : SOLUTION 1 DROP IN EACH EYE
     Route: 065
     Dates: start: 19930101
  6. XALATAN [Concomitant]
     Indication: GLAUCOMA
     Dosage: FORM = SOLUTION 1 DROP IN EACH EYE
     Route: 047
     Dates: start: 19930101
  7. REGLAN [Concomitant]
     Route: 065
  8. ONDANSETRON [Concomitant]
     Indication: VOMITING
     Route: 065
  9. RENAL TAB [Concomitant]
     Dosage: CAPS
     Route: 065
  10. MIDODRINE HCL [Concomitant]
     Route: 065
  11. GABAPENTIN [Concomitant]
     Route: 065
  12. SIMVASTATIN [Concomitant]
     Route: 065
  13. DOCUSATE SODIUM [Concomitant]
     Route: 065
  14. HYDROCODONE [Concomitant]
     Indication: PAIN
     Route: 065
     Dates: start: 20070101
  15. METOCLOPRAMIDE [Concomitant]
     Route: 065

REACTIONS (2)
  - DRUG INTERACTION [None]
  - HAEMORRHAGE [None]
